FAERS Safety Report 23500541 (Version 1)
Quarter: 2024Q1

REPORT INFORMATION
  Report Type: Spontaneous
  Country: FR (occurrence: FR)
  Receive Date: 20240208
  Receipt Date: 20240208
  Transmission Date: 20240410
  Serious: Yes (Hospitalization, Other)
  Sender: FDA-Public Use
  Company Number: FR-BRISTOL-MYERS SQUIBB COMPANY-2024-020778

PATIENT
  Age: 52 Year
  Sex: Female

DRUGS (2)
  1. NIVOLUMAB [Suspect]
     Active Substance: NIVOLUMAB
     Indication: Pleural mesothelioma malignant
     Dosage: DOSE : DOSES OF THE LABEL;     FREQ : N/A [HAD ONLY ONE COURSE]
     Route: 042
  2. IPILIMUMAB [Suspect]
     Active Substance: IPILIMUMAB
     Indication: Pleural mesothelioma malignant
     Dosage: DOSE : DOSES OF THE LABEL;     FREQ : N/A [HAD ONLY ONE COURSE]
     Route: 042

REACTIONS (4)
  - Gastrointestinal necrosis [Recovering/Resolving]
  - Thyroiditis [Recovering/Resolving]
  - Diabetes mellitus [Recovering/Resolving]
  - Encephalitis brain stem [Recovering/Resolving]
